FAERS Safety Report 7645913-2 (Version None)
Quarter: 2011Q3

REPORT INFORMATION
  Report Type: 
  Country: None (occurrence: None)
  Receive Date: 20110729
  Receipt Date: 20110720
  Transmission Date: 20111222
  Serious: Yes (Other)
  Sender: FDA-Public Use
  Company Number: US-ASTRAZENECA-2009UW03527

PATIENT
  Age: 44 Year
  Sex: Male
  Weight: 111.1 kg

DRUGS (10)
  1. RISPERDAL [Concomitant]
     Dates: start: 20040526
  2. WELLBUTRIN XL [Concomitant]
     Dates: start: 20040526
  3. SEROQUEL [Suspect]
     Route: 048
     Dates: start: 20040907
  4. ABILIFY [Concomitant]
     Dates: start: 20030101, end: 20070101
  5. MIRTAZAPINE [Concomitant]
     Dates: start: 20040410
  6. TRAZODONE HCL [Concomitant]
     Dates: start: 20030101
  7. SEROQUEL [Suspect]
     Indication: SCHIZOPHRENIA
     Route: 048
     Dates: start: 20010101, end: 20040901
  8. GEODON [Concomitant]
     Dates: start: 20080101
  9. RISPERDAL [Concomitant]
     Dosage: 2 MG TO 4 MG
     Dates: start: 20030101, end: 20070101
  10. LIPITOR [Concomitant]
     Dates: start: 20040907

REACTIONS (6)
  - TYPE 2 DIABETES MELLITUS [None]
  - OBESITY [None]
  - BACK INJURY [None]
  - GASTRITIS [None]
  - HEPATITIS C [None]
  - GALLBLADDER DISORDER [None]
